FAERS Safety Report 9943511 (Version 3)
Quarter: 2022Q2

REPORT INFORMATION
  Report Type: Spontaneous
  Country: US (occurrence: US)
  Receive Date: 20140303
  Receipt Date: 20220425
  Transmission Date: 20220721
  Serious: Yes (Other)
  Sender: FDA-Public Use
  Company Number: US-TEVA-465342USA

PATIENT
  Age: 59 Year
  Sex: Male

DRUGS (1)
  1. TAMSULOSIN [Suspect]
     Active Substance: TAMSULOSIN
     Indication: Benign prostatic hyperplasia
     Route: 065

REACTIONS (5)
  - Conjunctivitis [Unknown]
  - Eye pain [Unknown]
  - Pruritus [Unknown]
  - Lacrimation increased [Unknown]
  - Visual impairment [Unknown]
